FAERS Safety Report 9801253 (Version 1)
Quarter: 2014Q1

REPORT INFORMATION
  Report Type: Spontaneous
  Country: US (occurrence: US)
  Receive Date: 20140107
  Receipt Date: 20140107
  Transmission Date: 20141002
  Serious: No
  Sender: FDA-Public Use
  Company Number: US-ASTRAZENECA-2013SE78455

PATIENT
  Age: 62 Year
  Sex: Male

DRUGS (15)
  1. BRILINTA [Suspect]
     Indication: PERCUTANEOUS CORONARY INTERVENTION
     Route: 048
     Dates: start: 20130807
  2. METOPROLOL SUCCINATE ER [Suspect]
     Route: 048
  3. OMEPRAZOLE [Suspect]
     Route: 048
  4. ADVAIR DISKUS [Concomitant]
     Dosage: 500-50 MCG PRN
  5. AMOXICILLIN [Concomitant]
  6. COMBIVENT [Concomitant]
     Dosage: 18-103 MCG PRN
  7. DICLOFENAC SODIUM [Concomitant]
     Route: 048
  8. DOXYCYCLINE HYCLATE [Concomitant]
     Route: 048
  9. HYDROCHLOROTHIAZIDE [Concomitant]
     Route: 048
  10. HYDROCODONE WITH ACETAMINOPHEN [Concomitant]
     Dosage: 750 MG 7.5 MG UNK
  11. LOVASTATIN [Concomitant]
     Route: 048
  12. MIRAPEX [Concomitant]
     Route: 048
  13. PAROXETINE HCL [Concomitant]
     Route: 048
  14. VIAGRA [Concomitant]
  15. ZOLPIDEM [Concomitant]
     Route: 048

REACTIONS (1)
  - Dyspnoea [Recovering/Resolving]
